FAERS Safety Report 15591208 (Version 1)
Quarter: 2018Q4

REPORT INFORMATION
  Report Type: Spontaneous
  Country: CN (occurrence: CN)
  Receive Date: 20181107
  Receipt Date: 20181107
  Transmission Date: 20190205
  Serious: Yes (Other)
  Sender: FDA-Public Use
  Company Number: CN-ASTRAZENECA-2018SF45765

PATIENT
  Sex: Male
  Weight: 70 kg

DRUGS (3)
  1. ROSUVASTATIN CALCIUM. [Suspect]
     Active Substance: ROSUVASTATIN CALCIUM
     Indication: HYPERLIPIDAEMIA
     Route: 048
     Dates: start: 20180816, end: 20180823
  2. CIMETIDINE [Suspect]
     Active Substance: CIMETIDINE
     Indication: GASTROINTESTINAL DISORDER
     Route: 041
     Dates: start: 20180816, end: 20180823
  3. CLOPIDOGREL SULFATE [Suspect]
     Active Substance: CLOPIDOGREL BISULFATE
     Indication: CEREBRAL INFARCTION
     Route: 048
     Dates: start: 20180817, end: 20180831

REACTIONS (2)
  - Myoglobin blood increased [Recovering/Resolving]
  - Transaminases increased [Recovering/Resolving]
